FAERS Safety Report 12447655 (Version 1)
Quarter: 2016Q2

REPORT INFORMATION
  Report Type: Report from Study
  Country: US (occurrence: US)
  Receive Date: 20160608
  Receipt Date: 20160608
  Transmission Date: 20160815
  Serious: No
  Sender: FDA-Public Use
  Company Number: GXBR2016US001793

PATIENT
  Sex: Female

DRUGS (1)
  1. OMNITROPE [Suspect]
     Active Substance: SOMATROPIN
     Indication: PRADER-WILLI SYNDROME
     Dosage: 0.7 MG, QD
     Route: 065

REACTIONS (3)
  - Dermatillomania [Not Recovered/Not Resolved]
  - Onychophagia [Not Recovered/Not Resolved]
  - Mood swings [Not Recovered/Not Resolved]
